FAERS Safety Report 23584585 (Version 1)
Quarter: 2024Q1

REPORT INFORMATION
  Report Type: Spontaneous
  Country: US (occurrence: US)
  Receive Date: 20240301
  Receipt Date: 20240301
  Transmission Date: 20240410
  Serious: No
  Sender: FDA-Public Use
  Company Number: US-TEVA-VS-3137047

PATIENT
  Age: 36 Year
  Sex: Female

DRUGS (1)
  1. AJOVY [Suspect]
     Active Substance: FREMANEZUMAB-VFRM
     Indication: Product used for unknown indication
     Dosage: STRENGTH: 225 MG / 1.5 ML?PRODUCT - CODE: 0202?PRODUCT - NDC / DIN / MA #: 51759-0202-10
     Route: 065

REACTIONS (4)
  - Device malfunction [Unknown]
  - Drug delivery system issue [Unknown]
  - Drug dose omission by device [Unknown]
  - Migraine [Unknown]
